FAERS Safety Report 6066882-5 (Version None)
Quarter: 2009Q1

REPORT INFORMATION
  Report Type: 
  Country: None (occurrence: None)
  Receive Date: 20090205
  Receipt Date: 20080717
  Transmission Date: 20090719
  Serious: No
  Sender: FDA-Public Use
  Company Number: US-ABBOTT-08P-163-0465453-00

PATIENT
  Sex: Female
  Weight: 81.72 kg

DRUGS (12)
  1. VICODIN [Suspect]
     Indication: PAIN
     Route: 048
     Dates: start: 20071001
  2. LOPERAMIDE HCL [Concomitant]
     Indication: DIARRHOEA
     Route: 048
  3. BUDESONIDE [Concomitant]
     Indication: CROHN'S DISEASE
     Dosage: 30 MG DAILY
     Route: 048
  4. ALENDRONATE SODIUM [Concomitant]
     Indication: RESORPTION BONE INCREASED
     Route: 048
  5. WARFARIN SODIUM [Concomitant]
     Indication: ANTICOAGULANT THERAPY
     Dosage: 30MG DAILY
     Route: 048
  6. PAROXETINE HCL [Concomitant]
     Indication: DEPRESSION
     Dosage: 10MG DAILY
     Route: 048
  7. LEKOVIT CA [Concomitant]
     Indication: MINERAL SUPPLEMENTATION
     Dosage: 1 TABLET DAILY
     Route: 048
  8. FENTANYL-75 [Concomitant]
     Indication: PAIN
     Dosage: PATCH
     Route: 062
  9. CYANOCOBALAMIN [Concomitant]
     Indication: VITAMIN SUPPLEMENTATION
     Dosage: 1 TABLET DAILY
     Route: 048
  10. ONDANSETRON HYDROCHLORIDE [Concomitant]
     Indication: ANTIEMETIC SUPPORTIVE CARE
     Route: 048
  11. ACETAMINOPHEN W/ CODEINE [Concomitant]
     Indication: PAIN
     Route: 048
  12. ENOXAPARIN SODIUM [Concomitant]
     Indication: ANTICOAGULANT THERAPY
     Route: 050

REACTIONS (1)
  - MUSCLE SPASMS [None]
